FAERS Safety Report 25140341 (Version 1)
Quarter: 2025Q1

REPORT INFORMATION
  Report Type: Spontaneous
  Country: IR (occurrence: None)
  Receive Date: 20250331
  Receipt Date: 20250331
  Transmission Date: 20250409
  Serious: Yes (Hospitalization)
  Sender: INFORLIFE
  Company Number: IR-INFO-20250058

PATIENT
  Age: 88 Year
  Sex: Female

DRUGS (11)
  1. CIPROFLOXACIN [Suspect]
     Active Substance: CIPROFLOXACIN
     Indication: Antibiotic therapy
     Dosage: 400 MG AS A STAT DOSE, AND THIS WAS SUBSEQUENTLY REPEATED EVERY 8 HOURS FOR SEVERAL DAYS
     Route: 042
     Dates: start: 202312
  2. HALOPERIDOL [Suspect]
     Active Substance: HALOPERIDOL
     Indication: Agitation
     Dates: start: 202312
  3. METOCLOPRAMIDE [Suspect]
     Active Substance: METOCLOPRAMIDE
     Dates: start: 202312, end: 202312
  4. METOCLOPRAMIDE [Suspect]
     Active Substance: METOCLOPRAMIDE
     Dosage: 10 MG METOCLOPRAMIDE REGIMEN TWICE DAILY FOR 24 HOURS, FOLLOWED BY A DOSE OF 10 MG METOCLOPRAMIDE...
     Dates: start: 202312, end: 202312
  5. METOCLOPRAMIDE [Suspect]
     Active Substance: METOCLOPRAMIDE
     Dosage: 10 MG METOCLOPRAMIDE REGIMEN TWICE DAILY FOR 24 HOURS, FOLLOWED BY A DOSE OF 10 MG METOCLOPRAMIDE...
     Dates: start: 202312, end: 202312
  6. LOSARTAN [Concomitant]
     Active Substance: LOSARTAN
     Indication: Hypertension
  7. ALBUTEROL [Concomitant]
     Active Substance: ALBUTEROL
     Indication: Chronic obstructive pulmonary disease
  8. FLUTICASONE PROPIONATE\SALMETEROL XINAFOATE [Concomitant]
     Active Substance: FLUTICASONE PROPIONATE\SALMETEROL XINAFOATE
     Indication: Chronic obstructive pulmonary disease
  9. HEPARIN [Concomitant]
     Active Substance: HEPARIN SODIUM
     Indication: Atrial fibrillation
     Dosage: AT A RATE OF 1000 UNITS PER HOUR
     Dates: start: 202312
  10. OCTREOTIDE [Concomitant]
     Active Substance: OCTREOTIDE
     Indication: Gastrointestinal haemorrhage
     Dates: start: 202312
  11. PANTOPRAZOLE [Concomitant]
     Active Substance: PANTOPRAZOLE
     Indication: Gastrointestinal haemorrhage
     Dates: start: 202312

REACTIONS (1)
  - Dyskinesia [Recovered/Resolved]

NARRATIVE: CASE EVENT DATE: 20231201
